FAERS Safety Report 6547095-7 (Version None)
Quarter: 2010Q1

REPORT INFORMATION
  Report Type: 
  Country: None (occurrence: None)
  Receive Date: 20100122
  Receipt Date: 20100119
  Transmission Date: 20100710
  Serious: Yes (Hospitalization, Other)
  Sender: FDA-Public Use
  Company Number: US-MERCK-0910USA03484

PATIENT
  Age: 73 Year
  Sex: Female
  Weight: 56 kg

DRUGS (3)
  1. FOSAMAX [Suspect]
     Indication: OSTEOPOROSIS
     Route: 048
     Dates: start: 20010620, end: 20040803
  2. FOSAMAX [Suspect]
     Route: 048
     Dates: start: 20040101, end: 20080126
  3. SYNTHROID [Concomitant]
     Indication: HYPOTHYROIDISM
     Route: 065
     Dates: start: 19950101

REACTIONS (10)
  - ARTHRITIS [None]
  - CONTRAST MEDIA ALLERGY [None]
  - DYSPHAGIA [None]
  - FEMUR FRACTURE [None]
  - INSULIN-REQUIRING TYPE 2 DIABETES MELLITUS [None]
  - LOW TURNOVER OSTEOPATHY [None]
  - NAUSEA [None]
  - OSTEOARTHRITIS [None]
  - OSTEOPOROSIS [None]
  - STRESS FRACTURE [None]
